FAERS Safety Report 5327248-6 (Version None)
Quarter: 2007Q2

REPORT INFORMATION
  Report Type: 
  Country: None (occurrence: None)
  Receive Date: 20070517
  Receipt Date: 20070510
  Transmission Date: 20071010
  Serious: Yes (Life-Threatening, Other)
  Sender: FDA-Public Use
  Company Number: IT-AVENTIS-200711937EU

PATIENT
  Age: 86 Year
  Sex: Female

DRUGS (2)
  1. CLEXANE [Suspect]
     Indication: ATRIAL FIBRILLATION
     Route: 058
     Dates: start: 20061020, end: 20061110
  2. COUMADIN [Concomitant]

REACTIONS (1)
  - BONE MARROW FAILURE [None]
